FAERS Safety Report 10089156 (Version 1)
Quarter: 2014Q2

REPORT INFORMATION
  Report Type: Spontaneous
  Country: US (occurrence: None)
  Receive Date: 20140418
  Receipt Date: 20140418
  Transmission Date: 20141212
  Serious: No
  Sender: FDA-Public Use
  Company Number: None

PATIENT
  Age: 59 Year
  Sex: Female
  Weight: 61.69 kg

DRUGS (1)
  1. LEVOTHYROXINE [Suspect]
     Indication: HYPOTHYROIDISM
     Route: 048
     Dates: start: 20140101, end: 20140417

REACTIONS (6)
  - Anxiety [None]
  - Insomnia [None]
  - Disturbance in attention [None]
  - Tinnitus [None]
  - Depression [None]
  - Blood thyroid stimulating hormone abnormal [None]
